FAERS Safety Report 4813040-5 (Version None)
Quarter: 2005Q4

REPORT INFORMATION
  Report Type: 
  Country: None (occurrence: None)
  Receive Date: 20051028
  Receipt Date: 20050606
  Transmission Date: 20060501
  Serious: No
  Sender: FDA-Public Use
  Company Number: US-GLAXOSMITHKLINE-A0561416A

PATIENT
  Age: 43 Year
  Sex: Female

DRUGS (11)
  1. ADVAIR DISKUS 100/50 [Suspect]
     Indication: CHRONIC OBSTRUCTIVE PULMONARY DISEASE
     Dosage: 2PUFF TWICE PER DAY
     Route: 055
     Dates: start: 20050518
  2. SINGULAIR [Concomitant]
  3. ALBUTEROL [Concomitant]
  4. ALBUTEROL [Concomitant]
  5. THEOPHYLLINE [Concomitant]
  6. ZANTAC [Concomitant]
  7. GUAIFENESIN [Concomitant]
  8. PREDNISONE [Concomitant]
  9. BENZONATATE [Concomitant]
  10. ALLEGRA [Concomitant]
  11. VITAMIN E [Concomitant]

REACTIONS (1)
  - OVERDOSE [None]
